FAERS Safety Report 20052499 (Version 1)
Quarter: 2021Q4

REPORT INFORMATION
  Report Type: Spontaneous
  Country: SI (occurrence: SI)
  Receive Date: 20211110
  Receipt Date: 20211110
  Transmission Date: 20220303
  Serious: Yes (Hospitalization, Other)
  Sender: FDA-Public Use
  Company Number: SI-SA-2021SA368955

PATIENT
  Age: 22 Year
  Sex: Female

DRUGS (1)
  1. ALEMTUZUMAB [Suspect]
     Active Substance: ALEMTUZUMAB
     Indication: Relapsing-remitting multiple sclerosis
     Dosage: UNK

REACTIONS (7)
  - Haemophagocytic lymphohistiocytosis [Recovered/Resolved]
  - Pyrexia [Recovered/Resolved]
  - Hyperferritinaemia [Recovered/Resolved]
  - Inflammation [Recovered/Resolved]
  - Splenomegaly [Recovered/Resolved]
  - Bicytopenia [Recovered/Resolved]
  - Hypertriglyceridaemia [Recovered/Resolved]
